FAERS Safety Report 8086409-6 (Version None)
Quarter: 2012Q1

REPORT INFORMATION
  Report Type: 
  Country: None (occurrence: None)
  Receive Date: 20120128
  Receipt Date: 20110510
  Transmission Date: 20120608
  Serious: No
  Sender: FDA-Public Use
  Company Number: US-ABBOTT-11P-163-0724765-00

PATIENT
  Age: 60 Year
  Sex: Male

DRUGS (2)
  1. HUMIRA [Suspect]
     Indication: PSORIASIS
     Dates: start: 20090501
  2. ALLEGRA [Concomitant]
     Indication: SEASONAL ALLERGY
     Dates: start: 20010101

REACTIONS (7)
  - SCAB [None]
  - ILL-DEFINED DISORDER [None]
  - SKIN DISORDER [None]
  - FUNGAL INFECTION [None]
  - NAIL DISORDER [None]
  - SKIN PAPILLOMA [None]
  - PAIN [None]
